FAERS Safety Report 8326476-5 (Version None)
Quarter: 2012Q2

REPORT INFORMATION
  Report Type: 
  Country: None (occurrence: None)
  Receive Date: 20120501
  Receipt Date: 20120424
  Transmission Date: 20120825
  Serious: Yes (Other)
  Sender: FDA-Public Use
  Company Number: US-PFIZER INC-2012034222

PATIENT
  Sex: Female

DRUGS (5)
  1. LIPITOR [Suspect]
     Dosage: UNK
  2. DIFLUCAN [Suspect]
     Dosage: UNK
  3. PROTONIX [Suspect]
     Dosage: UNK
  4. GLIPIZIDE [Suspect]
     Dosage: UNK
  5. GLUCOTROL [Suspect]
     Dosage: UNK

REACTIONS (3)
  - LUNG DISORDER [None]
  - RESPIRATORY TRACT INFECTION [None]
  - DYSPEPSIA [None]
